FAERS Safety Report 13367517 (Version 1)
Quarter: 2017Q1

REPORT INFORMATION
  Report Type: Report from Study
  Country: NZ (occurrence: NZ)
  Receive Date: 20170324
  Receipt Date: 20170324
  Transmission Date: 20170429
  Serious: Yes (Life-Threatening, Other)
  Sender: FDA-Public Use
  Company Number: NZ-PFIZER INC-2017121304

PATIENT
  Age: 32 Year
  Sex: Female

DRUGS (1)
  1. ATRACURIUM BESILATE [Suspect]
     Active Substance: ATRACURIUM BESYLATE
     Dosage: UNK

REACTIONS (4)
  - Tachycardia [Unknown]
  - Hypotension [Unknown]
  - Rash [Unknown]
  - Anaphylactic reaction [Unknown]
